FAERS Safety Report 8287650-X (Version None)
Quarter: 2012Q2

REPORT INFORMATION
  Report Type: 
  Country: None (occurrence: None)
  Receive Date: 20120416
  Receipt Date: 20120411
  Transmission Date: 20120825
  Serious: Yes (Death, Hospitalization, Other)
  Sender: FDA-Public Use
  Company Number: PHHY2012BR030900

PATIENT
  Sex: Male

DRUGS (2)
  1. EXELON [Suspect]
     Dosage: 9MG/5CM2 (4.6MG/24 HRS)
     Route: 062
  2. EXELON [Suspect]
     Dosage: 18MG/10CM2 (9.5MG/24 HRS)
     Route: 062

REACTIONS (3)
  - GUN SHOT WOUND [None]
  - NOSOCOMIAL INFECTION [None]
  - SEPTIC SHOCK [None]
